FAERS Safety Report 10877439 (Version 1)
Quarter: 2015Q1

REPORT INFORMATION
  Report Type: Spontaneous
  Country: LB (occurrence: None)
  Receive Date: 20150224
  Receipt Date: 20150224
  Transmission Date: 20150721
  Serious: Yes (Other)
  Sender: FDA-Public Use
  Company Number: 20155RR-93048

PATIENT
  Age: 28 Year
  Sex: Female

DRUGS (8)
  1. FLUCONAZOLE (FLUCONAZOLE) UNKNOWN [Suspect]
     Active Substance: FLUCONAZOLE
     Indication: CANDIDA INFECTION
     Dosage: 150 MG TAKEN EVERY 5 DAYS AFTER STARTING ANTIBIOTIC THERAPY
  2. CIPROFLOXACIN (CIPROFLOXACIN) [Suspect]
     Active Substance: CIPROFLOXACIN
     Indication: URINARY TRACT INFECTION
  3. OFLOXACIN (OFLOXACIN) (OFLOXACIN) [Suspect]
     Active Substance: OFLOXACIN
     Indication: URINARY TRACT INFECTION
  4. CEFUROXIME (CEFUROXIME)UNKNOWN [Suspect]
     Active Substance: CEFUROXIME
     Indication: URINARY TRACT INFECTION
  5. FOSFOMYCINE [Suspect]
     Active Substance: FOSFOMYCIN
     Indication: PROPHYLAXIS
  6. NORFLOXACIN [Suspect]
     Active Substance: NORFLOXACIN
     Indication: URINARY TRACT INFECTION
  7. AMOXICILLIN-CLAVULANIC ACID [Suspect]
     Active Substance: AMOXICILLIN\CLAVULANIC ACID
     Indication: URINARY TRACT INFECTION
  8. NITROFURANTOIN (NITROFURANTOIN) [Suspect]
     Active Substance: NITROFURANTOIN

REACTIONS (4)
  - No therapeutic response [None]
  - Candida infection [None]
  - Urinary tract infection [None]
  - Drug resistance [None]
